FAERS Safety Report 25904158 (Version 4)
Quarter: 2025Q4

REPORT INFORMATION
  Report Type: Report from Study
  Country: US (occurrence: US)
  Receive Date: 20251010
  Receipt Date: 20251217
  Transmission Date: 20260117
  Serious: Yes (Other)
  Sender: ACADIA PHARMACEUTICALS
  Company Number: US-ACADIA PHARMACEUTICALS INC.-ACA-2025-PIM-010987

PATIENT
  Sex: Female

DRUGS (7)
  1. NUPLAZID [Suspect]
     Active Substance: PIMAVANSERIN TARTRATE
     Indication: Parkinson^s disease psychosis
     Dosage: 34 MILLIGRAM, QD
     Route: 048
  2. NUPLAZID [Suspect]
     Active Substance: PIMAVANSERIN TARTRATE
     Dosage: 34 MILLIGRAM, QD
     Route: 048
  3. DONEPEZIL [Concomitant]
     Active Substance: DONEPEZIL
     Dosage: UNK
  4. GOCOVRI [Concomitant]
     Active Substance: AMANTADINE
     Dosage: UNK
  5. PYRIDOXINE [Concomitant]
     Active Substance: PYRIDOXINE
     Dosage: UNK
  6. VITAMIN C [Concomitant]
     Active Substance: ASCORBIC ACID
     Dosage: UNK
  7. INBRIJA [Concomitant]
     Active Substance: LEVODOPA
     Dosage: UNK

REACTIONS (9)
  - Hallucination [Not Recovered/Not Resolved]
  - Dyspepsia [Not Recovered/Not Resolved]
  - Hypotension [Not Recovered/Not Resolved]
  - Feeling abnormal [Recovering/Resolving]
  - Anxiety [Not Recovered/Not Resolved]
  - Adverse drug reaction [Unknown]
  - Nightmare [Unknown]
  - Product distribution issue [Recovered/Resolved]
  - Therapy interrupted [Recovered/Resolved]
